FAERS Safety Report 5894935-0 (Version None)
Quarter: 2008Q3

REPORT INFORMATION
  Report Type: 
  Country: None (occurrence: None)
  Receive Date: 20080924
  Receipt Date: 20080917
  Transmission Date: 20090109
  Serious: Yes (Other)
  Sender: FDA-Public Use
  Company Number: PHEH2008US08314

PATIENT
  Sex: Male

DRUGS (1)
  1. SANDOSTATIN LAR [Suspect]

REACTIONS (4)
  - DIZZINESS [None]
  - DYSPNOEA [None]
  - DYSSTASIA [None]
  - LABILE BLOOD PRESSURE [None]
